FAERS Safety Report 7632601-1 (Version None)
Quarter: 2011Q3

REPORT INFORMATION
  Report Type: 
  Country: None (occurrence: None)
  Receive Date: 20110725
  Receipt Date: 20110715
  Transmission Date: 20111222
  Serious: Yes (Other)
  Sender: FDA-Public Use
  Company Number: JP-ABBOTT-11P-087-0840240-00

PATIENT
  Age: 63 Year
  Sex: Female
  Weight: 73 kg

DRUGS (3)
  1. KEISHIBUKURYOUGAN [Concomitant]
     Indication: PRODUCT USED FOR UNKNOWN INDICATION
  2. ROFULSUSHOSAN [Concomitant]
     Indication: PRODUCT USED FOR UNKNOWN INDICATION
  3. CLARITHROMYCIN [Suspect]
     Indication: TONSILLITIS
     Route: 048
     Dates: start: 20110421, end: 20110423

REACTIONS (1)
  - SOMNOLENCE [None]
